FAERS Safety Report 7971378-7 (Version None)
Quarter: 2011Q4

REPORT INFORMATION
  Report Type: 
  Country: None (occurrence: None)
  Receive Date: 20111123
  Receipt Date: 20110712
  Transmission Date: 20120403
  Serious: Yes (Other)
  Sender: FDA-Public Use
  Company Number: 1000021724

PATIENT
  Age: 68 Year
  Sex: Female
  Weight: 55.34 kg

DRUGS (6)
  1. NORCO [Concomitant]
  2. FLUOXETINE [Concomitant]
  3. DALIRESP [Suspect]
     Indication: CHRONIC OBSTRUCTIVE PULMONARY DISEASE
     Dosage: 500 MCG (500 MCG, 1 IN 1 D), ORAL
     Route: 048
     Dates: start: 20110615, end: 20110619
  4. DALIRESP [Suspect]
     Indication: BRONCHITIS CHRONIC
     Dosage: 500 MCG (500 MCG, 1 IN 1 D), ORAL
     Route: 048
     Dates: start: 20110615, end: 20110619
  5. FLUNISOLIDE [Concomitant]
  6. HYDROCHLOROTHIAZIDE [Concomitant]

REACTIONS (1)
  - SUICIDAL IDEATION [None]
